FAERS Safety Report 7407351-7 (Version None)
Quarter: 2011Q2

REPORT INFORMATION
  Report Type: 
  Country: None (occurrence: None)
  Receive Date: 20110411
  Receipt Date: 20110329
  Transmission Date: 20111010
  Serious: Yes (Hospitalization, Other)
  Sender: FDA-Public Use
  Company Number: US-ELI_LILLY_AND_COMPANY-US200909003733

PATIENT
  Sex: Female
  Weight: 46.032 kg

DRUGS (8)
  1. TOPROL-XL [Concomitant]
     Dosage: 25 MG, UNK
  2. ASPIRIN [Concomitant]
     Dosage: 81 MG, UNK
  3. FORTEO [Suspect]
     Dosage: 20 UG, QD
     Dates: start: 20091120
  4. FORTEO [Suspect]
     Indication: OSTEOPOROSIS
     Dosage: 20 UG, QD
     Route: 065
     Dates: start: 20090901, end: 20091026
  5. FORTEO [Suspect]
     Dosage: 20 UG, QD
     Route: 065
  6. NORVASC [Concomitant]
     Dosage: 10 MG, UNK
  7. CALTRATE D /00108001/ [Concomitant]
     Dosage: UNK, 2/D
  8. BENICAR [Concomitant]

REACTIONS (9)
  - THROAT IRRITATION [None]
  - COUGH [None]
  - FALL [None]
  - BREAST CANCER [None]
  - DYSPEPSIA [None]
  - WEIGHT DECREASED [None]
  - JOINT STIFFNESS [None]
  - PNEUMONIA [None]
  - DECREASED APPETITE [None]
